FAERS Safety Report 20336019 (Version 1)
Quarter: 2022Q1

REPORT INFORMATION
  Report Type: Spontaneous
  Country: US (occurrence: None)
  Receive Date: 20220114
  Receipt Date: 20220114
  Transmission Date: 20220423
  Serious: Yes (unspecified)
  Sender: FDA-Public Use
  Company Number: None

PATIENT
  Age: 37 Year
  Sex: Female
  Weight: 85.5 kg

DRUGS (4)
  1. TAXOL [Suspect]
     Active Substance: PACLITAXEL
     Indication: Breast cancer
     Dosage: FREQUENCY : ONCE;?
     Route: 041
     Dates: start: 20220113, end: 20220113
  2. EPIPEN [Concomitant]
     Active Substance: EPINEPHRINE
     Dates: start: 20220113, end: 20220113
  3. SOLU-CORTEF [Concomitant]
     Active Substance: HYDROCORTISONE SODIUM SUCCINATE
     Dates: start: 20220113, end: 20220113
  4. NS infusion [Concomitant]
     Dates: start: 20220113, end: 20220113

REACTIONS (5)
  - Infusion related reaction [None]
  - Abdominal discomfort [None]
  - Dyspnoea [None]
  - Chest discomfort [None]
  - Therapy cessation [None]

NARRATIVE: CASE EVENT DATE: 20220113
